FAERS Safety Report 23063743 (Version 2)
Quarter: 2024Q1

REPORT INFORMATION
  Report Type: Spontaneous
  Country: US (occurrence: US)
  Receive Date: 20231013
  Receipt Date: 20240320
  Transmission Date: 20240409
  Serious: No
  Sender: FDA-Public Use
  Company Number: US-NOVEN PHARMACEUTICALS, INC.-2023-NOV-US000850

PATIENT
  Sex: Female

DRUGS (2)
  1. XELSTRYM [Suspect]
     Active Substance: DEXTROAMPHETAMINE
     Indication: Attention deficit hyperactivity disorder
     Dosage: 18 MG, UNK
     Route: 062
     Dates: start: 202308
  2. XELSTRYM [Suspect]
     Active Substance: DEXTROAMPHETAMINE
     Dosage: 9 MG, UNK
     Route: 062
     Dates: start: 20230719

REACTIONS (5)
  - Apathy [Recovered/Resolved]
  - Somnolence [Recovered/Resolved]
  - Therapeutic product ineffective [Recovered/Resolved]
  - Device use issue [Recovered/Resolved]
  - Product administered at inappropriate site [Not Recovered/Not Resolved]

NARRATIVE: CASE EVENT DATE: 20230101
